FAERS Safety Report 20348288 (Version 1)
Quarter: 2022Q1

REPORT INFORMATION
  Report Type: Spontaneous
  Country: US (occurrence: US)
  Receive Date: 20220119
  Receipt Date: 20220119
  Transmission Date: 20220424
  Serious: No
  Sender: FDA-Public Use
  Company Number: US-BAUSCH-BL-2022-001248

PATIENT
  Age: 91 Year
  Sex: Female

DRUGS (2)
  1. VYZULTA [Suspect]
     Active Substance: LATANOPROSTENE BUNOD
     Indication: Glaucoma
     Route: 047
     Dates: start: 202109, end: 20220106
  2. VYZULTA [Suspect]
     Active Substance: LATANOPROSTENE BUNOD
     Route: 047
     Dates: start: 20220107, end: 20220109

REACTIONS (3)
  - Therapeutic product effect incomplete [Unknown]
  - Therapy interrupted [Unknown]
  - Product packaging quantity issue [Unknown]

NARRATIVE: CASE EVENT DATE: 20220110
